FAERS Safety Report 10284208 (Version 1)
Quarter: 2014Q3

REPORT INFORMATION
  Report Type: Report from Study
  Country: US (occurrence: US)
  Receive Date: 20140708
  Receipt Date: 20140708
  Transmission Date: 20150326
  Serious: Yes (Other)
  Sender: FDA-Public Use
  Company Number: US-ABBVIE-14P-163-1255406-00

PATIENT
  Sex: Female

DRUGS (9)
  1. HUMIRA [Suspect]
     Active Substance: ADALIMUMAB
  2. HUMIRA [Suspect]
     Active Substance: ADALIMUMAB
     Indication: CROHN^S DISEASE
     Dosage: STARTER PACK EACH TIME STARTED, TIMES 3
     Dates: start: 2007, end: 2007
  3. HUMIRA [Suspect]
     Active Substance: ADALIMUMAB
     Dates: start: 2007, end: 2009
  4. REMICADE [Concomitant]
     Active Substance: INFLIXIMAB
     Indication: PROMOTION OF WOUND HEALING
     Dates: start: 2012, end: 201307
  5. PREDNISONE. [Concomitant]
     Active Substance: PREDNISONE
     Indication: PRODUCT USED FOR UNKNOWN INDICATION
     Dosage: OFF AND ON
  6. AZATHIOPRINE. [Concomitant]
     Active Substance: AZATHIOPRINE
     Indication: PRODUCT USED FOR UNKNOWN INDICATION
     Dosage: OFF AND ON
  7. HUMIRA [Suspect]
     Active Substance: ADALIMUMAB
     Dates: start: 201401
  8. PREDNISONE. [Concomitant]
     Active Substance: PREDNISONE
     Dates: start: 201401
  9. MULTIVITAMINS [Concomitant]
     Active Substance: VITAMINS
     Indication: PRODUCT USED FOR UNKNOWN INDICATION

REACTIONS (4)
  - Device issue [Unknown]
  - Crohn^s disease [Not Recovered/Not Resolved]
  - Female genital tract fistula [Recovered/Resolved]
  - Intestinal resection [Not Recovered/Not Resolved]

NARRATIVE: CASE EVENT DATE: 2007
